FAERS Safety Report 11637199 (Version 1)
Quarter: 2015Q4

REPORT INFORMATION
  Report Type: Spontaneous
  Country: CH (occurrence: CH)
  Receive Date: 20151016
  Receipt Date: 20151016
  Transmission Date: 20160304
  Serious: Yes (Death, Hospitalization)
  Sender: FDA-Public Use
  Company Number: CH-GUERBET LLC-1043040

PATIENT
  Age: 76 Year
  Sex: Female

DRUGS (2)
  1. RAPIDOCAIN(LIDOCAIN) [Concomitant]
     Dates: start: 20150924, end: 20150924
  2. LIPIODOL [Suspect]
     Active Substance: ETHIODIZED OIL
     Indication: LYMPH NODES SCAN ABNORMAL
     Route: 027
     Dates: start: 20150924, end: 20150924

REACTIONS (5)
  - Encephalopathy [Fatal]
  - Pleural effusion [None]
  - Pulmonary embolism [Fatal]
  - Cerebral artery embolism [Fatal]
  - Overdose [Fatal]

NARRATIVE: CASE EVENT DATE: 20150924
